FAERS Safety Report 9220606 (Version 2)
Quarter: 2013Q2

REPORT INFORMATION
  Report Type: Spontaneous
  Country: AT (occurrence: AT)
  Receive Date: 20130409
  Receipt Date: 20130424
  Transmission Date: 20140414
  Serious: Yes (Hospitalization)
  Sender: FDA-Public Use
  Company Number: AT-JNJFOC-20130402214

PATIENT
  Age: 72 Year
  Sex: Female

DRUGS (11)
  1. XARELTO [Suspect]
     Indication: CEREBROVASCULAR ACCIDENT PROPHYLAXIS
     Route: 048
     Dates: start: 201301, end: 201304
  2. XARELTO [Suspect]
     Indication: ATRIAL FIBRILLATION
     Route: 048
     Dates: start: 201301, end: 201304
  3. SIMVASTATIN [Concomitant]
     Route: 065
  4. PANTOLOC [Concomitant]
     Route: 065
  5. TRITACE [Concomitant]
     Route: 065
  6. PROFENID [Concomitant]
     Route: 065
  7. MOLSIDOLAT [Concomitant]
     Route: 065
  8. ACETYLSALICYLIC ACID [Concomitant]
     Indication: ACUTE CORONARY SYNDROME
     Dosage: {=100 MG
     Route: 065
  9. SIRDALUD [Concomitant]
     Route: 065
  10. NEBIVOLOL [Concomitant]
     Route: 065
  11. HEPARIN [Concomitant]
     Route: 065

REACTIONS (2)
  - Dermatitis allergic [Not Recovered/Not Resolved]
  - Cutaneous lupus erythematosus [Not Recovered/Not Resolved]
